FAERS Safety Report 10188902 (Version 1)
Quarter: 2014Q2

REPORT INFORMATION
  Report Type: Spontaneous
  Country: US (occurrence: US)
  Receive Date: 20140522
  Receipt Date: 20140522
  Transmission Date: 20141212
  Serious: No
  Sender: FDA-Public Use
  Company Number: US-ZOGENIX, INC.-2014ZX000072

PATIENT
  Age: 46 Year
  Sex: Male
  Weight: 97.61 kg

DRUGS (3)
  1. ZOHYDRO ER [Suspect]
     Indication: TESTICULAR PAIN
     Route: 048
     Dates: start: 20140321, end: 20140322
  2. OPANA [Suspect]
     Indication: PAIN
     Route: 048
  3. HYDROCODONE [Concomitant]
     Indication: TESTICULAR PAIN
     Dates: start: 19991104

REACTIONS (5)
  - Muscle spasms [Unknown]
  - Dizziness [Unknown]
  - Hypoaesthesia [Unknown]
  - Hyperhidrosis [Unknown]
  - Drug administration error [Unknown]
